FAERS Safety Report 8003187-7 (Version None)
Quarter: 2011Q4

REPORT INFORMATION
  Report Type: 
  Country: None (occurrence: None)
  Receive Date: 20111222
  Receipt Date: 20111213
  Transmission Date: 20120403
  Serious: Yes (Other)
  Sender: FDA-Public Use
  Company Number: US-JNJFOC-20111206150

PATIENT
  Sex: Female
  Weight: 105.24 kg

DRUGS (3)
  1. REMICADE [Suspect]
     Indication: PYODERMA GANGRENOSUM
     Dosage: TAKEN FOR MANY YEARS
     Route: 042
  2. HUMIRA [Suspect]
     Indication: PYODERMA GANGRENOSUM
  3. STEROIDS NOS [Concomitant]

REACTIONS (1)
  - BREAST CANCER METASTATIC [None]
